FAERS Safety Report 5379098-2 (Version None)
Quarter: 2007Q3

REPORT INFORMATION
  Report Type: 
  Country: None (occurrence: None)
  Receive Date: 20070702
  Receipt Date: 20070615
  Transmission Date: 20080115
  Serious: Yes (Hospitalization)
  Sender: FDA-Public Use
  Company Number: 2007SP012930

PATIENT
  Age: 73 Year
  Sex: Female

DRUGS (15)
  1. IMDUR [Suspect]
     Indication: DRUG USE FOR UNKNOWN INDICATION
     Dates: start: 20070606, end: 20070613
  2. PANTOPRAZOLE SODIUM [Concomitant]
  3. CLINDAMYCIN HCL [Concomitant]
  4. NITROGLYCERIN [Concomitant]
  5. POTASSIUM CHLORIDE [Concomitant]
  6. METOPROLOL SUCCINATE [Concomitant]
  7. BENAZEPRIL HYDROCHLORIDE [Concomitant]
  8. MEDROL [Concomitant]
  9. OFLOXACIN [Concomitant]
  10. CRESTOR [Concomitant]
  11. CALCIUM CHLORIDE [Concomitant]
  12. NORVASC [Concomitant]
  13. LASIX [Concomitant]
  14. ASPIRIN [Concomitant]
  15. ENOXAPARIN SODIUM [Concomitant]

REACTIONS (2)
  - DIPLOPIA [None]
  - VITH NERVE PARALYSIS [None]
